FAERS Safety Report 8058150-7 (Version None)
Quarter: 2012Q1

REPORT INFORMATION
  Report Type: 
  Country: None (occurrence: None)
  Receive Date: 20120112
  Receipt Date: 20111228
  Transmission Date: 20120608
  Serious: Yes (Hospitalization, Disabling, Other)
  Sender: FDA-Public Use
  Company Number: 2011MA018105

PATIENT
  Age: 63 Year
  Sex: Female

DRUGS (2)
  1. OLMESARTAN MEDOXOMIL [Concomitant]
  2. HYDROCHLOROTHIAZIDE [Suspect]
     Indication: HYPERTENSION

REACTIONS (5)
  - OSMOTIC DEMYELINATION SYNDROME [None]
  - NAUSEA [None]
  - VOMITING [None]
  - DIZZINESS [None]
  - ASTHENIA [None]
